FAERS Safety Report 7737846-8 (Version None)
Quarter: 2011Q3

REPORT INFORMATION
  Report Type: 
  Country: None (occurrence: None)
  Receive Date: 20110908
  Receipt Date: 20110830
  Transmission Date: 20111222
  Serious: Yes (Hospitalization, Other)
  Sender: FDA-Public Use
  Company Number: PHHY2009CA37317

PATIENT
  Sex: Male

DRUGS (6)
  1. SANDOSTATIN LAR [Suspect]
     Dosage: 60 MG, EVERY 4 WEEKS
     Route: 030
  2. ANTIBIOTICS [Concomitant]
  3. SANDOSTATIN LAR [Suspect]
     Dosage: 60 MG, QMO
     Route: 030
  4. SANDOSTATIN LAR [Suspect]
     Dosage: 60 MG, BIW
     Route: 030
  5. SANDOSTATIN LAR [Suspect]
     Dosage: 60 MG, QW2
     Route: 030
  6. SANDOSTATIN LAR [Suspect]
     Indication: CARCINOID TUMOUR
     Dosage: 60 MG, BIW
     Route: 030
     Dates: start: 20070402

REACTIONS (24)
  - PNEUMOTHORAX [None]
  - FATIGUE [None]
  - BLOOD PRESSURE INCREASED [None]
  - MUSCULOSKELETAL PAIN [None]
  - DYSURIA [None]
  - JOINT SWELLING [None]
  - TOOTHACHE [None]
  - OROPHARYNGEAL PAIN [None]
  - DYSPHAGIA [None]
  - FALL [None]
  - UNDERWEIGHT [None]
  - MASS [None]
  - NEPHROLITHIASIS [None]
  - GROIN PAIN [None]
  - ASTHENIA [None]
  - URINARY TRACT INFECTION [None]
  - DEHYDRATION [None]
  - BLOOD URINE PRESENT [None]
  - PAIN [None]
  - LUNG NEOPLASM [None]
  - DYSPNOEA [None]
  - FLUSHING [None]
  - DIZZINESS [None]
  - HYPOAESTHESIA [None]
